FAERS Safety Report 6705694-3 (Version None)
Quarter: 2010Q2

REPORT INFORMATION
  Report Type: 
  Country: None (occurrence: None)
  Receive Date: 20100503
  Receipt Date: 20100419
  Transmission Date: 20101027
  Serious: Yes (Other)
  Sender: FDA-Public Use
  Company Number: US-RANBAXY-2010US-30429

PATIENT

DRUGS (3)
  1. SIMVASTATIN [Suspect]
     Indication: DRUG USE FOR UNKNOWN INDICATION
     Dosage: 40 MG DAILY
     Route: 048
  2. DILTIAZEM HCL [Suspect]
     Indication: HYPERTENSION
     Dosage: 30 MG FOUR TIMES A DAY
     Route: 048
  3. ASPIRIN [Suspect]
     Indication: DRUG USE FOR UNKNOWN INDICATION
     Route: 048

REACTIONS (3)
  - DRUG INTERACTION [None]
  - HEPATITIS [None]
  - RHABDOMYOLYSIS [None]
